FAERS Safety Report 9198410 (Version 1)
Quarter: 2013Q1

REPORT INFORMATION
  Report Type: Spontaneous
  Country: US (occurrence: None)
  Receive Date: 20120709
  Receipt Date: 20120709
  Transmission Date: 20140127
  Serious: Yes (Other)
  Sender: FDA-Public Use
  Company Number: PHHY2011US66167

PATIENT
  Sex: Male

DRUGS (6)
  1. GLEEVEC (IMATINIB) UNKNOWN [Suspect]
     Route: 048
  2. LISINOPRIL (LISINOPRIL) [Concomitant]
  3. LIPITOR (ATORVASTATIN CALCIUM) [Concomitant]
  4. PLAVIX (CLOPIDOGREL SULFATE) [Concomitant]
  5. LOPRESSOR (METOPROLOL TARTRATE) [Concomitant]
  6. VICODIN (HYDROCODONE BITARTRATE PARACETAMOL) [Concomitant]

REACTIONS (2)
  - Hypotension [None]
  - Headache [None]
